FAERS Safety Report 5148682-3 (Version None)
Quarter: 2006Q4

REPORT INFORMATION
  Report Type: 
  Country: None (occurrence: None)
  Receive Date: 20060918
  Receipt Date: 20060414
  Transmission Date: 20070319
  Serious: Yes (Other)
  Sender: FDA-Public Use
  Company Number: US-JNJFOC-20060403521

PATIENT
  Age: 17 Year
  Sex: Male

DRUGS (1)
  1. TOPAMAX [Suspect]
     Indication: DEPRESSION
     Dosage: 300 MG, 1 IN 1 DAY, ORAL
     Route: 048
     Dates: start: 20060301, end: 20060301

REACTIONS (5)
  - ACCIDENTAL OVERDOSE [None]
  - CONFUSIONAL STATE [None]
  - DISTURBANCE IN ATTENTION [None]
  - FEELING ABNORMAL [None]
  - HALLUCINATION [None]
